FAERS Safety Report 9721382 (Version 1)
Quarter: 2013Q4

REPORT INFORMATION
  Report Type: Spontaneous
  Country: US (occurrence: US)
  Receive Date: 20131129
  Receipt Date: 20131129
  Transmission Date: 20140711
  Serious: No
  Sender: FDA-Public Use
  Company Number: US-PFIZER INC-2013340685

PATIENT
  Age: 82 Year
  Sex: Female
  Weight: 59 kg

DRUGS (3)
  1. PANTOPRAZOLE [Suspect]
     Dosage: 20 MG, 2X/DAY
  2. PANTOPRAZOLE [Suspect]
     Dosage: 40 MG, 2X/DAY
  3. VITAMIN D [Concomitant]
     Dosage: 50000 MG, MONTHLY

REACTIONS (2)
  - Drug ineffective [Unknown]
  - Malaise [Unknown]
